FAERS Safety Report 12889877 (Version 2)
Quarter: 2016Q4

REPORT INFORMATION
  Report Type: Report from Study
  Country: NL (occurrence: NL)
  Receive Date: 20161027
  Receipt Date: 20161118
  Transmission Date: 20170207
  Serious: Yes (Death)
  Sender: FDA-Public Use
  Company Number: PHHY2016NL148328

PATIENT
  Sex: Female

DRUGS (1)
  1. ACLASTA [Suspect]
     Active Substance: ZOLEDRONIC ACID
     Indication: OSTEOPOROSIS
     Dosage: 5 MG, ONCE EVERY 52 WEEKS
     Route: 042
     Dates: start: 20151124, end: 20151124

REACTIONS (2)
  - Neoplasm malignant [Fatal]
  - Concomitant disease progression [Fatal]
